FAERS Safety Report 7723095-6 (Version None)
Quarter: 2011Q3

REPORT INFORMATION
  Report Type: 
  Country: None (occurrence: None)
  Receive Date: 20110901
  Receipt Date: 20110328
  Transmission Date: 20111222
  Serious: No
  Sender: FDA-Public Use
  Company Number: US-BAYER-2011-027065

PATIENT
  Sex: Female

DRUGS (1)
  1. MIRENA [Suspect]
     Indication: CONTRACEPTION
     Dosage: 20 MCG/24HR, CONT
     Dates: start: 20070505

REACTIONS (6)
  - HYPOAESTHESIA [None]
  - BACK PAIN [None]
  - ABDOMINAL PAIN [None]
  - VAGINAL DISCHARGE [None]
  - BREAST PAIN [None]
  - VAGINAL HAEMORRHAGE [None]
